FAERS Safety Report 18175352 (Version 1)
Quarter: 2020Q3

REPORT INFORMATION
  Report Type: Spontaneous
  Country: US (occurrence: US)
  Receive Date: 20200820
  Receipt Date: 20200820
  Transmission Date: 20201103
  Serious: No
  Sender: FDA-Public Use
  Company Number: None

PATIENT
  Age: 80 Year
  Sex: Female
  Weight: 55.3 kg

DRUGS (4)
  1. ANOTO ELLIPTA [Concomitant]
  2. IBRANCE [Suspect]
     Active Substance: PALBOCICLIB
     Indication: BREAST CANCER
     Dosage: ?          OTHER FREQUENCY:21 DAYS;?
     Route: 048
     Dates: start: 20190508, end: 20200820
  3. PROVENTIL [Concomitant]
     Active Substance: ALBUTEROL
  4. SYNTHROID [Concomitant]
     Active Substance: LEVOTHYROXINE SODIUM

REACTIONS (1)
  - Death [None]

NARRATIVE: CASE EVENT DATE: 20200820
